FAERS Safety Report 12624608 (Version 1)
Quarter: 2016Q3

REPORT INFORMATION
  Report Type: Spontaneous
  Country: US (occurrence: None)
  Receive Date: 20160804
  Receipt Date: 20160804
  Transmission Date: 20161109
  Serious: Yes (Disabling)
  Sender: FDA-Public Use
  Company Number: None

PATIENT
  Age: 44 Year
  Sex: Female
  Weight: 117.94 kg

DRUGS (1)
  1. NITROFURANTOIN, 100 MG 100MG [Suspect]
     Active Substance: NITROFURANTOIN
     Indication: URINARY TRACT INFECTION
     Dosage: 10 CAPSULE(S) FOUR TIMES A DAY TAKEN BY MOUTH
     Route: 048
     Dates: start: 20160614, end: 20160802

REACTIONS (8)
  - Pyrexia [None]
  - Dyspnoea [None]
  - Cough [None]
  - Chest discomfort [None]
  - Muscular weakness [None]
  - Chest pain [None]
  - Fatigue [None]
  - Chills [None]

NARRATIVE: CASE EVENT DATE: 20160801
